FAERS Safety Report 18695213 (Version 1)
Quarter: 2021Q1

REPORT INFORMATION
  Report Type: Spontaneous
  Country: US (occurrence: US)
  Receive Date: 20210104
  Receipt Date: 20210104
  Transmission Date: 20210419
  Serious: Yes (Other)
  Sender: FDA-Public Use
  Company Number: US-PFIZER INC-2020512212

PATIENT
  Age: 57 Year
  Sex: Female

DRUGS (1)
  1. CYTARABINE. [Suspect]
     Active Substance: CYTARABINE
     Dosage: UNK (HIGH DOSE)

REACTIONS (3)
  - Hepatocellular injury [Unknown]
  - Cholestatic liver injury [Unknown]
  - Hyperbilirubinaemia [Unknown]
